FAERS Safety Report 4396615-X (Version None)
Quarter: 2004Q3

REPORT INFORMATION
  Report Type: 
  Country: None (occurrence: None)
  Receive Date: 20040708
  Receipt Date: 20040624
  Transmission Date: 20050211
  Serious: Yes (Life-Threatening, Hospitalization)
  Sender: FDA-Public Use
  Company Number: 04P-062-0264799-00

PATIENT
  Age: 87 Year
  Sex: Female

DRUGS (9)
  1. UDRIK (MAVIK) (TRANDOLAPRIL) (TRANDOLAPRIL) [Suspect]
     Indication: HYPERTENSION
     Dosage: 2 MG, 1 IN 1 D, ORAL
     Route: 048
     Dates: end: 20021231
  2. DICLOFENAC SODIUM [Suspect]
     Indication: PAIN
     Dosage: 75 MG, 1 IN 1 D, ORAL
     Route: 048
     Dates: end: 20021231
  3. SPIRONOLACTONE [Suspect]
     Indication: HYPERTENSION
     Dosage: 50 MG, 1 IN 1 D, ORAL
     Route: 048
     Dates: end: 20021231
  4. ASPIRIN [Concomitant]
  5. DIGITOXIN TAB [Concomitant]
  6. PROMAZINE PHOSPHATE [Concomitant]
  7. TORSEMIDE [Concomitant]
  8. NORETHISTERONE [Concomitant]
  9. ETHINYL ESTRADIOL TAB [Concomitant]

REACTIONS (9)
  - DEMENTIA [None]
  - DEPRESSION [None]
  - DIARRHOEA [None]
  - DRUG INTERACTION [None]
  - FLUID INTAKE REDUCED [None]
  - HYPERKALAEMIA [None]
  - RENAL IMPAIRMENT [None]
  - SOMNOLENCE [None]
  - URINARY TRACT INFECTION [None]
